FAERS Safety Report 16007731 (Version 3)
Quarter: 2019Q2

REPORT INFORMATION
  Report Type: Spontaneous
  Country: FR (occurrence: FR)
  Receive Date: 20190226
  Receipt Date: 20190405
  Transmission Date: 20190711
  Serious: Yes (Hospitalization, Other)
  Sender: FDA-Public Use
  Company Number: FR-JNJFOC-20190223067

PATIENT
  Age: 41 Year
  Sex: Female

DRUGS (1)
  1. TREVICTA [Suspect]
     Active Substance: PALIPERIDONE PALMITATE
     Indication: SCHIZOPHRENIA
     Route: 030
     Dates: start: 201809

REACTIONS (3)
  - Exposure to toxic agent [Unknown]
  - Psychotic disorder [Unknown]
  - Physical assault [Unknown]

NARRATIVE: CASE EVENT DATE: 20190104
